FAERS Safety Report 7217133-7 (Version None)
Quarter: 2011Q1

REPORT INFORMATION
  Report Type: 
  Country: None (occurrence: None)
  Receive Date: 20110110
  Receipt Date: 20110105
  Transmission Date: 20110831
  Serious: Yes (Other)
  Sender: FDA-Public Use
  Company Number: FR-BRISTOL-MYERS SQUIBB COMPANY-15475981

PATIENT
  Sex: Male

DRUGS (2)
  1. TRUVADA [Suspect]
  2. REYATAZ [Suspect]

REACTIONS (1)
  - RENAL FAILURE [None]
